FAERS Safety Report 5851999-8 (Version None)
Quarter: 2008Q3

REPORT INFORMATION
  Report Type: 
  Country: None (occurrence: None)
  Receive Date: 20080820
  Receipt Date: 20080811
  Transmission Date: 20090109
  Serious: Yes (Other)
  Sender: FDA-Public Use
  Company Number: DK-PFIZER INC-2008066530

PATIENT
  Age: 69 Year
  Sex: Female

DRUGS (1)
  1. SALAZOPYRIN [Suspect]
     Indication: ARTHRITIS REACTIVE

REACTIONS (3)
  - PETECHIAE [None]
  - PRURITUS [None]
  - RASH GENERALISED [None]
